FAERS Safety Report 7193382-1 (Version None)
Quarter: 2010Q4

REPORT INFORMATION
  Report Type: 
  Country: None (occurrence: None)
  Receive Date: 20101124
  Receipt Date: 20100907
  Transmission Date: 20110411
  Serious: No
  Sender: FDA-Public Use
  Company Number: 018376

PATIENT
  Age: 30 Year
  Sex: Female

DRUGS (1)
  1. LACOSAMIDE [Suspect]
     Indication: EPILEPSY
     Dosage: (UNSPECIFIED)

REACTIONS (1)
  - PETIT MAL EPILEPSY [None]
